FAERS Safety Report 6621755-1 (Version None)
Quarter: 2010Q1

REPORT INFORMATION
  Report Type: 
  Country: None (occurrence: None)
  Receive Date: 20100223
  Receipt Date: 20100106
  Transmission Date: 20100710
  Serious: No
  Sender: FDA-Public Use
  Company Number: 003985

PATIENT
  Sex: Female
  Weight: 50.3 kg

DRUGS (5)
  1. CIMZIA [Suspect]
     Indication: RHEUMATOID ARTHRITIS
     Dosage: 2.0 ML SUBCUTANEOUS, 1.0 ML EVERY 2 WEEKS SUBCUTANEOUS
     Route: 058
     Dates: start: 20090801, end: 20090101
  2. CIMZIA [Suspect]
     Indication: RHEUMATOID ARTHRITIS
     Dosage: 2.0 ML SUBCUTANEOUS, 1.0 ML EVERY 2 WEEKS SUBCUTANEOUS
     Route: 058
     Dates: start: 20090101
  3. PREDNISONE TAB [Concomitant]
  4. PERCOCET [Concomitant]
  5. TRAMADOL HCL [Concomitant]

REACTIONS (5)
  - DRUG INEFFECTIVE [None]
  - DRY SKIN [None]
  - HAEMORRHAGE SUBEPIDERMAL [None]
  - RASH ERYTHEMATOUS [None]
  - SKIN LESION [None]
